FAERS Safety Report 7583336-5 (Version None)
Quarter: 2011Q2

REPORT INFORMATION
  Report Type: 
  Country: None (occurrence: None)
  Receive Date: 20110630
  Receipt Date: 20110622
  Transmission Date: 20111010
  Serious: Yes (Other)
  Sender: FDA-Public Use
  Company Number: US-JNJFOC-20110310581

PATIENT
  Sex: Female
  Weight: 73.48 kg

DRUGS (12)
  1. EMEND [Concomitant]
     Indication: NAUSEA
     Route: 048
     Dates: start: 20110101
  2. DOXORUBICIN HCL [Suspect]
     Route: 042
  3. PHENERGAN HCL [Concomitant]
     Indication: NAUSEA
     Route: 048
     Dates: start: 20110101
  4. NEULASTA [Concomitant]
     Indication: INFECTION PROPHYLAXIS
     Route: 058
     Dates: start: 20110101
  5. DOXORUBICIN HCL [Suspect]
     Indication: OVARIAN CANCER
     Route: 042
     Dates: end: 20110425
  6. DOXORUBICIN HCL [Suspect]
     Route: 042
  7. EMEND [Concomitant]
     Indication: VOMITING
     Route: 048
     Dates: start: 20110101
  8. PHENERGAN HCL [Concomitant]
     Indication: VOMITING
     Route: 048
     Dates: start: 20110101
  9. NEULASTA [Concomitant]
     Indication: PROPHYLAXIS
     Route: 058
     Dates: start: 20110101
  10. DOXORUBICIN HCL [Suspect]
     Route: 042
     Dates: start: 20110201
  11. DEXAMETHASONE [Concomitant]
     Indication: PREMEDICATION
     Route: 048
     Dates: start: 20110101
  12. DOXORUBICIN HCL [Suspect]
     Route: 042
     Dates: start: 20110124

REACTIONS (7)
  - BACK PAIN [None]
  - BLISTER [None]
  - PALMAR ERYTHEMA [None]
  - FATIGUE [None]
  - HEPATIC NEOPLASM [None]
  - ARTHRALGIA [None]
  - COLD SWEAT [None]
